FAERS Safety Report 4679302-X (Version None)
Quarter: 2005Q2

REPORT INFORMATION
  Report Type: 
  Country: None (occurrence: None)
  Receive Date: 20050531
  Receipt Date: 20050517
  Transmission Date: 20051028
  Serious: Yes (Other)
  Sender: FDA-Public Use
  Company Number: B0360164A

PATIENT
  Sex: Female

DRUGS (2)
  1. PAXIL [Suspect]
     Dosage: VARIABLE DOSE
     Dates: end: 20030501
  2. ZOPICLONE [Concomitant]

REACTIONS (7)
  - CONDITION AGGRAVATED [None]
  - DEPRESSION [None]
  - DRUG WITHDRAWAL SYNDROME [None]
  - FEELINGS OF WORTHLESSNESS [None]
  - IMPULSIVE BEHAVIOUR [None]
  - OVERDOSE [None]
  - SUICIDAL IDEATION [None]
